FAERS Safety Report 5944707-3 (Version None)
Quarter: 2008Q4

REPORT INFORMATION
  Report Type: 
  Country: None (occurrence: None)
  Receive Date: 20081107
  Receipt Date: 20081105
  Transmission Date: 20090506
  Serious: Yes (Other)
  Sender: FDA-Public Use
  Company Number: US-BAYER-200813688BCC

PATIENT
  Sex: Male

DRUGS (5)
  1. ALEVE [Suspect]
     Indication: SLEEP DISORDER
     Dosage: TOTAL DAILY DOSE: 440 MG  UNIT DOSE: 220 MG
     Route: 048
     Dates: start: 20070601, end: 20080301
  2. TRAZODONE HCL [Concomitant]
  3. DIOVAN [Concomitant]
  4. PROTONIX [Concomitant]
  5. LORAZEPAM [Concomitant]

REACTIONS (4)
  - ANAEMIA [None]
  - BLOOD COUNT ABNORMAL [None]
  - HAEMORRHAGE [None]
  - MALAISE [None]
